FAERS Safety Report 5514322-4 (Version None)
Quarter: 2007Q4

REPORT INFORMATION
  Report Type: 
  Country: None (occurrence: None)
  Receive Date: 20071113
  Receipt Date: 20070413
  Transmission Date: 20080405
  Serious: No
  Sender: FDA-Public Use
  Company Number: A0647211A

PATIENT
  Age: 81 Year
  Sex: Male

DRUGS (6)
  1. COREG [Suspect]
     Indication: LEFT VENTRICULAR DYSFUNCTION
     Dosage: 12.5MG TWICE PER DAY
     Route: 048
     Dates: start: 20060901
  2. AMARYL [Concomitant]
  3. LIPITOR [Concomitant]
  4. PLAVIX [Concomitant]
  5. LASIX [Concomitant]
  6. COZAAR [Concomitant]

REACTIONS (1)
  - AMNESIA [None]
